FAERS Safety Report 9790092 (Version 1)
Quarter: 2013Q4

REPORT INFORMATION
  Report Type: Spontaneous
  Country: US (occurrence: None)
  Receive Date: 20131230
  Receipt Date: 20131230
  Transmission Date: 20140711
  Serious: Yes (Life-Threatening, Hospitalization, Disabling)
  Sender: FDA-Public Use
  Company Number: None

PATIENT
  Age: 86 Year
  Sex: Male
  Weight: 63.5 kg

DRUGS (1)
  1. TOVIAZ [Suspect]
     Indication: BLADDER DISORDER
     Dosage: 4 MG ONE PER DAY BY MOUTH
     Route: 048
     Dates: start: 20131204

REACTIONS (2)
  - Pain [None]
  - Dysuria [None]
